FAERS Safety Report 8710246 (Version 2)
Quarter: 2013Q4

REPORT INFORMATION
  Report Type: Spontaneous
  Country: US (occurrence: US)
  Receive Date: 20120807
  Receipt Date: 20131101
  Transmission Date: 20140711
  Serious: No
  Sender: FDA-Public Use
  Company Number: US-009507513-1207USA008458

PATIENT
  Age: 58 Year
  Sex: Male

DRUGS (7)
  1. VICTRELIS [Suspect]
     Dosage: 800 MG, TID (EVERY 7-9 HOURS) WITH FOOD
     Route: 048
  2. PEGINTRON [Suspect]
     Dosage: 150 RP, UNK
  3. RIBAPAK [Suspect]
     Dosage: 1200/DAY
  4. ASPIRIN [Concomitant]
  5. TYLENOL [Concomitant]
  6. BENAZEPRIL HYDROCHLORIDE [Concomitant]
  7. VITAMINS (UNSPECIFIED) [Concomitant]

REACTIONS (5)
  - Paranasal sinus hypersecretion [Unknown]
  - Aptyalism [Unknown]
  - Dehydration [Unknown]
  - White blood cell count decreased [Unknown]
  - Influenza like illness [Unknown]
